FAERS Safety Report 5105427-0 (Version None)
Quarter: 2006Q3

REPORT INFORMATION
  Report Type: 
  Country: None (occurrence: None)
  Receive Date: 20060915
  Receipt Date: 20060901
  Transmission Date: 20061208
  Serious: Yes (Hospitalization, Other)
  Sender: FDA-Public Use
  Company Number: PHBS2006CH13269

PATIENT
  Age: 70 Year
  Sex: Female

DRUGS (14)
  1. DAFALGAN [Concomitant]
     Indication: PAIN
     Dosage: 4000 MG/D
     Dates: start: 20060717, end: 20060724
  2. ACIDUM FOLICUM STREULI [Concomitant]
     Dosage: 5 MG/D
     Dates: start: 20060720, end: 20060724
  3. DISTRANEURIN [Concomitant]
     Indication: SLEEP DISORDER
     Dosage: 300 MG/D
     Dates: start: 20060720, end: 20060724
  4. RESYL [Concomitant]
     Indication: COUGH
     Dosage: 60 DROPS/D
     Dates: start: 20060720, end: 20060724
  5. HAEMODIALYSIS [Concomitant]
     Dates: start: 20060714
  6. ZOMETA [Suspect]
     Indication: HYPERCALCAEMIA OF MALIGNANCY
     Dosage: 4 MG
     Route: 042
     Dates: start: 20060713
  7. DEXAMETHASONE [Suspect]
     Dosage: 40 MG
     Dates: start: 20060713, end: 20060714
  8. LASIX [Suspect]
     Dosage: 20 MG
     Route: 042
     Dates: start: 20060710
  9. MERONEM [Concomitant]
     Indication: BRONCHOPNEUMONIA
     Dosage: 500-2000 MG/D
     Dates: start: 20060715, end: 20060720
  10. HALDOL SOLUTAB [Concomitant]
     Indication: RESTLESSNESS
     Dosage: 3 MG/D
     Route: 042
     Dates: start: 20060715, end: 20060724
  11. NEXIUM [Concomitant]
     Indication: GASTROOESOPHAGEAL REFLUX DISEASE
     Dosage: 40 MG/D
     Dates: start: 20060715, end: 20060724
  12. ELTROXIN [Concomitant]
     Indication: HYPOTHYROIDISM
     Dosage: 75 UG/D
     Dates: start: 20060715, end: 20060724
  13. GRANOCYTE ^CHUGAI^ [Concomitant]
     Dosage: 1 UG/D
     Route: 058
     Dates: start: 20060715, end: 20060717
  14. KONAKION [Concomitant]
     Dosage: 10 MG/D
     Dates: start: 20060715, end: 20060724

REACTIONS (12)
  - AGITATION [None]
  - BRONCHOPNEUMONIA [None]
  - COUGH [None]
  - GASTROOESOPHAGEAL REFLUX DISEASE [None]
  - GRAND MAL CONVULSION [None]
  - HYPOCALCAEMIA [None]
  - HYPOTHYROIDISM [None]
  - MEDICATION ERROR [None]
  - OVERDOSE [None]
  - PAIN [None]
  - RESTLESSNESS [None]
  - SLEEP DISORDER [None]
